FAERS Safety Report 5894862-9 (Version None)
Quarter: 2008Q3

REPORT INFORMATION
  Report Type: 
  Country: None (occurrence: None)
  Receive Date: 20080924
  Receipt Date: 20080707
  Transmission Date: 20090109
  Serious: No
  Sender: FDA-Public Use
  Company Number: US-ASTRAZENECA-2008UW13607

PATIENT
  Age: 44 Year
  Sex: Female
  Weight: 63 kg

DRUGS (9)
  1. SEROQUEL [Suspect]
     Indication: BIPOLAR DISORDER
     Route: 048
  2. SEROQUEL [Suspect]
     Indication: OBSESSIVE-COMPULSIVE DISORDER
     Route: 048
  3. SEROQUEL [Suspect]
     Route: 048
  4. SEROQUEL [Suspect]
     Route: 048
  5. ALLEGRA [Concomitant]
  6. NASACORT [Concomitant]
  7. EFFEXOR [Concomitant]
  8. LEXAPRO [Concomitant]
  9. ZOLOFT [Concomitant]

REACTIONS (11)
  - ABDOMINAL DISTENSION [None]
  - AGITATION [None]
  - ANGER [None]
  - FATIGUE [None]
  - FEELING DRUNK [None]
  - PALPITATIONS [None]
  - POLYMENORRHOEA [None]
  - SNORING [None]
  - SOMNOLENCE [None]
  - SWELLING FACE [None]
  - WEIGHT INCREASED [None]
